FAERS Safety Report 21766313 (Version 1)
Quarter: 2022Q4

REPORT INFORMATION
  Report Type: Spontaneous
  Country: BR (occurrence: BR)
  Receive Date: 20221222
  Receipt Date: 20221222
  Transmission Date: 20230112
  Serious: Yes (Other)
  Sender: FDA-Public Use
  Company Number: BR-002147023-NVSC2022BR293954

PATIENT
  Sex: Female

DRUGS (1)
  1. TEGRETOL XR [Suspect]
     Active Substance: CARBAMAZEPINE
     Indication: Product used for unknown indication
     Dosage: 200 MG (60 TABLETS)
     Route: 065

REACTIONS (4)
  - Spinal fracture [Unknown]
  - Seizure [Unknown]
  - Bone disorder [Unknown]
  - Drug ineffective [Unknown]
